FAERS Safety Report 9708225 (Version 1)
Quarter: 2013Q4

REPORT INFORMATION
  Report Type: Spontaneous
  Country: US (occurrence: None)
  Receive Date: 20131122
  Receipt Date: 20131122
  Transmission Date: 20140711
  Serious: No
  Sender: FDA-Public Use
  Company Number: None

PATIENT
  Age: 58 Year
  Sex: Male
  Weight: 96.7 kg

DRUGS (2)
  1. TELAPREVIR [Suspect]
     Indication: HEPATITIS C
     Route: 048
     Dates: start: 20131104
  2. PEGINTERFERON [Suspect]
     Indication: HEPATITIS C
     Route: 058
     Dates: start: 20131104

REACTIONS (8)
  - Chest pain [None]
  - Anxiety [None]
  - Pain [None]
  - Rash [None]
  - Dry skin [None]
  - Pruritus [None]
  - Urticaria [None]
  - Angina pectoris [None]
